FAERS Safety Report 24335369 (Version 1)
Quarter: 2024Q3

REPORT INFORMATION
  Report Type: Spontaneous
  Country: US (occurrence: US)
  Receive Date: 20240918
  Receipt Date: 20240918
  Transmission Date: 20241016
  Serious: No
  Sender: ABBVIE
  Company Number: US-ABBVIE-5924242

PATIENT
  Age: 49 Year
  Sex: Female

DRUGS (2)
  1. DALVANCE [Suspect]
     Active Substance: DALBAVANCIN
     Indication: Localised infection
     Route: 042
     Dates: start: 202409, end: 202409
  2. DALVANCE [Suspect]
     Active Substance: DALBAVANCIN
     Indication: Localised infection
     Route: 042
     Dates: start: 202404, end: 202404

REACTIONS (3)
  - Rash macular [Not Recovered/Not Resolved]
  - Rash [Not Recovered/Not Resolved]
  - Vasculitis [Not Recovered/Not Resolved]

NARRATIVE: CASE EVENT DATE: 20240901
